FAERS Safety Report 22094489 (Version 1)
Quarter: 2023Q1

REPORT INFORMATION
  Report Type: Spontaneous
  Country: GB (occurrence: GB)
  Receive Date: 20230314
  Receipt Date: 20230314
  Transmission Date: 20230417
  Serious: Yes (Disabling, Other)
  Sender: FDA-Public Use
  Company Number: None

PATIENT
  Age: 75 Year
  Sex: Female

DRUGS (1)
  1. ALENDRONATE SODIUM [Suspect]
     Active Substance: ALENDRONATE SODIUM
     Indication: Adverse drug reaction
     Dosage: 70MG ONCE A WEEK
     Dates: start: 20230224, end: 20230227

REACTIONS (5)
  - Medication error [Unknown]
  - Abdominal pain upper [Recovering/Resolving]
  - Retching [Recovered/Resolved with Sequelae]
  - Dysphagia [Recovering/Resolving]
  - Nausea [Recovered/Resolved with Sequelae]

NARRATIVE: CASE EVENT DATE: 20230225
